FAERS Safety Report 18124517 (Version 3)
Quarter: 2021Q3

REPORT INFORMATION
  Report Type: Spontaneous
  Country: US (occurrence: US)
  Receive Date: 20200807
  Receipt Date: 20210720
  Transmission Date: 20211014
  Serious: No
  Sender: FDA-Public Use
  Company Number: US-PFIZER INC-2020301116

PATIENT
  Age: 85 Year
  Sex: Male

DRUGS (3)
  1. INLYTA [Suspect]
     Active Substance: AXITINIB
     Dosage: 5 MG, UNK
     Dates: start: 20200716
  2. INLYTA [Suspect]
     Active Substance: AXITINIB
     Dosage: 5 MG, UNK
     Dates: start: 20201005
  3. INLYTA [Suspect]
     Active Substance: AXITINIB
     Dosage: 5 MG, UNK
     Dates: start: 20200718

REACTIONS (8)
  - Fatigue [Unknown]
  - Abdominal pain upper [Unknown]
  - Dehydration [Unknown]
  - Diarrhoea [Unknown]
  - Pain in extremity [Unknown]
  - Constipation [Unknown]
  - Lethargy [Unknown]
  - Cold sweat [Unknown]
